FAERS Safety Report 23257092 (Version 4)
Quarter: 2024Q1

REPORT INFORMATION
  Report Type: Report from Study
  Country: CO (occurrence: CO)
  Receive Date: 20231204
  Receipt Date: 20240305
  Transmission Date: 20240409
  Serious: Yes (Other)
  Sender: FDA-Public Use
  Company Number: CO-BAYER-2023A172109

PATIENT
  Sex: Male

DRUGS (2)
  1. EYLEA [Suspect]
     Active Substance: AFLIBERCEPT
     Indication: Retinal vein occlusion
     Dosage: 2 MG, ONCE , LEFT EYE, SOLUTION FOR INJECTION, 40MG/ML
     Route: 031
     Dates: start: 20230308, end: 20230308
  2. EYLEA [Suspect]
     Active Substance: AFLIBERCEPT
     Dosage: 2 MG, ONCE, LEFT EYE, SOLUTION FOR INJECTION, 40MG/ML
     Route: 031
     Dates: start: 20230905

REACTIONS (2)
  - Eye haemorrhage [Not Recovered/Not Resolved]
  - Eye laser surgery [Unknown]

NARRATIVE: CASE EVENT DATE: 20230308
